FAERS Safety Report 8224931-X (Version None)
Quarter: 2012Q1

REPORT INFORMATION
  Report Type: 
  Country: None (occurrence: None)
  Receive Date: 20120321
  Receipt Date: 20120316
  Transmission Date: 20120608
  Serious: Yes (Death, Life-Threatening, Hospitalization, Disabling)
  Sender: FDA-Public Use
  Company Number: GB-SANOFI-AVENTIS-2011SA012596

PATIENT
  Age: 80 Year
  Sex: Male
  Weight: 86.4 kg

DRUGS (16)
  1. DOCETAXEL [Suspect]
     Indication: PROSTATE CANCER
     Route: 041
     Dates: start: 20101001
  2. PREDNISONE [Suspect]
     Indication: PROSTATE CANCER
     Route: 065
     Dates: start: 20101210
  3. INDORAMIN [Concomitant]
     Indication: HYPERTENSION
     Route: 048
     Dates: end: 20110205
  4. OMEPRAZOLE [Concomitant]
     Route: 048
     Dates: end: 20110205
  5. FERROUS FUMARATE [Concomitant]
     Route: 048
     Dates: end: 20110205
  6. MORPHINE SULFATE [Concomitant]
     Route: 048
     Dates: end: 20110205
  7. METOCLOPRAMIDE [Concomitant]
     Indication: ANTIEMETIC SUPPORTIVE CARE
     Route: 048
     Dates: end: 20110204
  8. ENOXAPARIN [Concomitant]
     Indication: THROMBOSIS PROPHYLAXIS
     Route: 065
  9. PREDNISONE [Suspect]
     Route: 065
     Dates: start: 20101001
  10. OMEPRAZOLE [Concomitant]
     Route: 048
     Dates: end: 20110205
  11. BLINDED THERAPY [Suspect]
     Indication: PROSTATE CANCER
     Route: 048
     Dates: start: 20101001
  12. BLINDED THERAPY [Suspect]
     Route: 048
     Dates: start: 20110125
  13. DOCETAXEL [Suspect]
     Route: 041
     Dates: start: 20110125
  14. DOCETAXEL [Suspect]
     Route: 041
     Dates: start: 20101210
  15. BLINDED THERAPY [Suspect]
     Route: 048
     Dates: start: 20101210
  16. PREDNISONE [Suspect]
     Route: 065
     Dates: start: 20110125

REACTIONS (3)
  - DYSPNOEA [None]
  - PULMONARY EMBOLISM [None]
  - PROSTATE CANCER METASTATIC [None]
